FAERS Safety Report 19617784 (Version 1)
Quarter: 2021Q3

REPORT INFORMATION
  Report Type: Spontaneous
  Country: CN (occurrence: CN)
  Receive Date: 20210727
  Receipt Date: 20210727
  Transmission Date: 20211014
  Serious: Yes (Other)
  Sender: FDA-Public Use
  Company Number: CN-009507513-2107CHN007106

PATIENT
  Age: 63 Year
  Sex: Male
  Weight: 63.7 kg

DRUGS (1)
  1. INVANZ [Suspect]
     Active Substance: ERTAPENEM SODIUM
     Indication: ABDOMINAL INFECTION
     Dosage: 0.5 G, ONCE DAILY
     Route: 033
     Dates: start: 20210704, end: 20210715

REACTIONS (3)
  - Disorganised speech [Recovering/Resolving]
  - Toxic encephalopathy [Unknown]
  - Hallucination [Recovering/Resolving]

NARRATIVE: CASE EVENT DATE: 202107
